FAERS Safety Report 8400088-7 (Version None)
Quarter: 2012Q2

REPORT INFORMATION
  Report Type: 
  Country: None (occurrence: None)
  Receive Date: 20120531
  Receipt Date: 20120521
  Transmission Date: 20120825
  Serious: Yes (Other)
  Sender: FDA-Public Use
  Company Number: JP-PFIZER INC-2012083321

PATIENT
  Age: 40 Year
  Sex: Male
  Weight: 69 kg

DRUGS (9)
  1. ZYVOX [Suspect]
     Indication: GRAFT INFECTION
     Dosage: 600 MG, 2X/DAY
     Route: 041
     Dates: start: 20110916, end: 20111004
  2. WARFARIN [Suspect]
     Dosage: 4 MG/DAY
     Route: 048
     Dates: start: 20110913, end: 20110915
  3. VERAPAMIL HCL [Concomitant]
     Dosage: 120 MG/DAY
     Dates: end: 20111004
  4. LANSOPRAZOLE [Concomitant]
     Dosage: 15 MG/DAY
     Dates: end: 20110923
  5. WARFARIN [Suspect]
     Dosage: UNK
     Dates: start: 20110908
  6. WARFARIN [Suspect]
     Dosage: 4.5 MG/DAY
     Route: 048
     Dates: start: 20110916, end: 20110917
  7. LOPRESSOR [Concomitant]
     Dosage: 10 MG/DAY
     Dates: end: 20111004
  8. WARFARIN [Suspect]
     Dosage: 5 MG/DAY
     Route: 048
     Dates: start: 20110918, end: 20110920
  9. HEPARIN [Concomitant]
     Dosage: UNK

REACTIONS (1)
  - INTERNATIONAL NORMALISED RATIO INCREASED [None]
